FAERS Safety Report 8913166 (Version 9)
Quarter: 2013Q3

REPORT INFORMATION
  Report Type: Report from Study
  Country: ES (occurrence: ES)
  Receive Date: 20121116
  Receipt Date: 20130916
  Transmission Date: 20140515
  Serious: Yes (Life-Threatening, Hospitalization)
  Sender: FDA-Public Use
  Company Number: ES-VERTEX PHARMACEUTICAL INC.-2012-024733

PATIENT
  Age: 48 Year
  Sex: Male
  Weight: 78.8 kg

DRUGS (10)
  1. VX-950 (TELAPREVIR) [Suspect]
     Indication: CHRONIC HEPATITIS C
     Dosage: 750 MG, TID, TABLET
     Route: 048
     Dates: start: 20120928, end: 20121113
  2. COPEGUS [Suspect]
     Indication: CHRONIC HEPATITIS C
     Dosage: 400 MG, BID
     Route: 048
     Dates: start: 20120928, end: 20121113
  3. PEGASYS [Suspect]
     Indication: CHRONIC HEPATITIS C
     Dosage: 180 ?G, QW
     Route: 058
     Dates: start: 20120928, end: 20121113
  4. PREZISTA [Concomitant]
     Indication: HIV INFECTION
     Dosage: 800 MG, UNK
     Route: 048
     Dates: start: 2000
  5. PREZISTA [Concomitant]
     Dosage: 800 MG, QD
     Route: 048
     Dates: start: 20120227
  6. EMTRIVA [Concomitant]
     Indication: PRODUCT USED FOR UNKNOWN INDICATION
     Dosage: 200 MG, QD
     Route: 048
     Dates: start: 20120227
  7. VIREAD [Concomitant]
     Indication: PRODUCT USED FOR UNKNOWN INDICATION
     Dosage: 300 MG, QD
     Route: 048
     Dates: start: 20120227
  8. NORVIR [Concomitant]
     Indication: HIV INFECTION
     Dosage: 100 MG, UNK
     Route: 048
     Dates: start: 2000
  9. NORVIR [Concomitant]
     Dosage: 100 MG, QD
     Route: 048
     Dates: start: 20120227
  10. TRUVADA [Concomitant]
     Indication: HIV INFECTION
     Dosage: DOSAGE FORM: TABLET, 200 MG/245 MG
     Route: 048
     Dates: start: 1995

REACTIONS (1)
  - Pancreatitis acute [Recovered/Resolved]
